FAERS Safety Report 11732172 (Version 1)
Quarter: 2015Q4

REPORT INFORMATION
  Report Type: Spontaneous
  Country: US (occurrence: US)
  Receive Date: 20151110
  Receipt Date: 20151110
  Transmission Date: 20160304
  Serious: No
  Sender: FDA-Public Use
  Company Number: US-ELI_LILLY_AND_COMPANY-US201203003603

PATIENT
  Age: 52 Year
  Sex: Male
  Weight: 67.12 kg

DRUGS (1)
  1. FORTEO [Suspect]
     Active Substance: TERIPARATIDE
     Indication: OSTEOPOROSIS
     Dosage: 20 UG, QD
     Route: 058
     Dates: start: 20111121

REACTIONS (3)
  - Discomfort [Unknown]
  - Injection site pain [Unknown]
  - Sinus operation [Unknown]

NARRATIVE: CASE EVENT DATE: 20120309
